FAERS Safety Report 11981421 (Version 1)
Quarter: 2016Q1

REPORT INFORMATION
  Report Type: Spontaneous
  Country: US (occurrence: US)
  Receive Date: 20160130
  Receipt Date: 20160130
  Transmission Date: 20160526
  Serious: No
  Sender: FDA-Public Use
  Company Number: PHEH2016US001989

PATIENT
  Age: 40 Year
  Sex: Female
  Weight: 68 kg

DRUGS (1)
  1. FEMARA [Suspect]
     Active Substance: LETROZOLE
     Indication: BREAST CANCER
     Dosage: 2.5 MG, QD (ONCE DAILY)
     Route: 065
     Dates: start: 201512

REACTIONS (2)
  - Stomatitis [Recovered/Resolved]
  - Stomatitis [Not Recovered/Not Resolved]

NARRATIVE: CASE EVENT DATE: 201512
